FAERS Safety Report 8349368-4 (Version None)
Quarter: 2012Q2

REPORT INFORMATION
  Report Type: 
  Country: None (occurrence: None)
  Receive Date: 20120510
  Receipt Date: 20120502
  Transmission Date: 20120825
  Serious: Yes (Other)
  Sender: FDA-Public Use
  Company Number: US-ASTRAZENECA-2011SE17131

PATIENT
  Age: 6105 Day
  Sex: Female
  Weight: 74.8 kg

DRUGS (3)
  1. SEROQUEL [Suspect]
     Indication: POST-TRAUMATIC STRESS DISORDER
     Dosage: 50 MG IN THE MORNING AND 500 MG AT NIGHT
     Route: 048
     Dates: start: 20080101, end: 20110324
  2. ZOLOFT [Concomitant]
     Indication: DEPRESSION
     Route: 048
     Dates: start: 20080101
  3. SEROQUEL [Suspect]
     Indication: DEPRESSION
     Dosage: 50 MG IN THE MORNING AND 500 MG AT NIGHT
     Route: 048
     Dates: start: 20080101, end: 20110324

REACTIONS (7)
  - VISUAL IMPAIRMENT [None]
  - DECREASED APPETITE [None]
  - INTENTIONAL DRUG MISUSE [None]
  - DRUG WITHDRAWAL SYNDROME [None]
  - DEFAECATION URGENCY [None]
  - VOMITING [None]
  - TREMOR [None]
